APPROVED DRUG PRODUCT: THEOPHYLLINE
Active Ingredient: THEOPHYLLINE
Strength: 600MG
Dosage Form/Route: TABLET, EXTENDED RELEASE;ORAL
Application: A040539 | Product #001
Applicant: ABLE LABORATORIES INC
Approved: Apr 27, 2004 | RLD: No | RS: No | Type: DISCN